FAERS Safety Report 5762858-3 (Version None)
Quarter: 2008Q2

REPORT INFORMATION
  Report Type: 
  Country: None (occurrence: None)
  Receive Date: 20080529
  Receipt Date: 20080421
  Transmission Date: 20081010
  Serious: No
  Sender: FDA-Public Use
  Company Number: US-JNJFOC-20080305422

PATIENT
  Age: 64 Year
  Sex: Male
  Weight: 69.4003 kg

DRUGS (1)
  1. DACOGEN [Suspect]
     Indication: ACUTE MYELOID LEUKAEMIA
     Dosage: 40 MG, INTRAVENOUS
     Route: 042
     Dates: start: 20080210, end: 20080215

REACTIONS (3)
  - MUSCLE SPASMS [None]
  - PAIN [None]
  - URTICARIA [None]
